FAERS Safety Report 8484211 (Version 2)
Quarter: 2013Q1

REPORT INFORMATION
  Report Type: Spontaneous
  Country: JP (occurrence: JP)
  Receive Date: 20120330
  Receipt Date: 20130117
  Transmission Date: 20140127
  Serious: Yes (Hospitalization)
  Sender: FDA-Public Use
  Company Number: JP-ELI_LILLY_AND_COMPANY-JP201203007179

PATIENT
  Sex: Female

DRUGS (2)
  1. FORTEO [Suspect]
     Route: 058
  2. FORTEO [Suspect]
     Dosage: UNK

REACTIONS (3)
  - Muscle haemorrhage [Unknown]
  - Pleural effusion [Unknown]
  - Fall [Unknown]
